FAERS Safety Report 18965360 (Version 1)
Quarter: 2021Q1

REPORT INFORMATION
  Report Type: Spontaneous
  Country: EG (occurrence: EG)
  Receive Date: 20210304
  Receipt Date: 20210304
  Transmission Date: 20210420
  Serious: Yes (Hospitalization)
  Sender: FDA-Public Use
  Company Number: EG-ROCHE-2781986

PATIENT
  Age: 59 Year
  Sex: Male
  Weight: 80 kg

DRUGS (10)
  1. PERFALGAN [Concomitant]
     Active Substance: ACETAMINOPHEN
  2. ACTEMRA [Suspect]
     Active Substance: TOCILIZUMAB
     Indication: COVID-19
     Dosage: LOADING DOSE
     Route: 065
     Dates: start: 20210113, end: 20210117
  3. LISINOPRIL. [Concomitant]
     Active Substance: LISINOPRIL
     Indication: HYPERTENSION
  4. MERONEM [Concomitant]
     Active Substance: MEROPENEM
  5. VITAMIN C [Concomitant]
     Active Substance: ASCORBIC ACID
  6. ACTEMRA [Suspect]
     Active Substance: TOCILIZUMAB
     Indication: CYTOKINE STORM
  7. ZYVOX [Concomitant]
     Active Substance: LINEZOLID
  8. ZINC. [Concomitant]
     Active Substance: ZINC
  9. SOLU?MEDROL [Concomitant]
     Active Substance: METHYLPREDNISOLONE SODIUM SUCCINATE
  10. CONTROLOC [Concomitant]
     Active Substance: PANTOPRAZOLE SODIUM

REACTIONS (3)
  - Hepatic function abnormal [Recovered/Resolved]
  - Off label use [Unknown]
  - Intentional product use issue [Unknown]

NARRATIVE: CASE EVENT DATE: 20210113
